FAERS Safety Report 5085918-1 (Version None)
Quarter: 2006Q3

REPORT INFORMATION
  Report Type: 
  Country: None (occurrence: None)
  Receive Date: 20060817
  Receipt Date: 20060808
  Transmission Date: 20061208
  Serious: Yes (Hospitalization)
  Sender: FDA-Public Use
  Company Number: 2006072017

PATIENT
  Age: 77 Year
  Sex: Female

DRUGS (10)
  1. ATORVASTATIN CALCIUM [Suspect]
     Indication: DRUG USE FOR UNKNOWN INDICATION
     Dosage: 20 MG (20 MG, DAILY), ORAL
     Route: 048
     Dates: end: 20060603
  2. TIZANIDINE HCL [Concomitant]
  3. MADOPAR (BENSERAZIDE HYDROCHLORIDE, LEVODOPA) [Concomitant]
  4. ALL OTHER THERAPEUTIC PRODUCTS (ALL OTHER THERAPEUTIC PRODUCTS) [Concomitant]
  5. DIAMICRON (GLICLAZIDE) [Concomitant]
  6. MODURETIC 5-50 [Concomitant]
  7. COSAAR (LOSARTAN POTASSIUM) [Concomitant]
  8. SPIRICORT (PREDNISOLONE) [Concomitant]
  9. LANTUS [Concomitant]
  10. NOVORAPID (INSULIN ASPART) [Concomitant]

REACTIONS (8)
  - ASTHENIA [None]
  - AUTOIMMUNE DISORDER [None]
  - BLOOD CREATINE PHOSPHOKINASE INCREASED [None]
  - BLOOD PRESSURE INCREASED [None]
  - HYPERGLYCAEMIA [None]
  - HYPERKALAEMIA [None]
  - MUSCULAR WEAKNESS [None]
  - POLYMYOSITIS [None]
